FAERS Safety Report 14181846 (Version 2)
Quarter: 2018Q2

REPORT INFORMATION
  Report Type: Report from Study
  Country: US (occurrence: US)
  Receive Date: 20171113
  Receipt Date: 20180618
  Transmission Date: 20180711
  Serious: No
  Sender: FDA-Public Use
  Company Number: PHEH2017US036680

PATIENT
  Sex: Male

DRUGS (1)
  1. AFINITOR [Suspect]
     Active Substance: EVEROLIMUS
     Indication: ASTROCYTOMA, LOW GRADE
     Dosage: 5 MG QD (ONCE DAILY)
     Route: 048
     Dates: start: 20111019

REACTIONS (4)
  - Skin disorder [Unknown]
  - Diarrhoea [Unknown]
  - Stomatitis [Unknown]
  - Dry skin [Not Recovered/Not Resolved]
